FAERS Safety Report 25469494 (Version 1)
Quarter: 2025Q2

REPORT INFORMATION
  Report Type: Spontaneous
  Country: US (occurrence: None)
  Receive Date: 20250623
  Receipt Date: 20250623
  Transmission Date: 20250716
  Serious: Yes (Disabling, Other)
  Sender: FDA-CTU
  Company Number: None

PATIENT
  Age: 71 Year
  Sex: Female
  Weight: 91.8 kg

DRUGS (7)
  1. PROLIA [Suspect]
     Active Substance: DENOSUMAB
     Indication: Osteoporosis
     Route: 030
     Dates: start: 20230226, end: 20250226
  2. Methexrate [Concomitant]
  3. TRAMADOL [Concomitant]
     Active Substance: TRAMADOL
  4. toproral [Concomitant]
  5. VITAMIN D [Concomitant]
     Active Substance: VITAMIN D NOS
  6. TUMS [Concomitant]
     Active Substance: CALCIUM CARBONATE
  7. Esoprazole [Concomitant]

REACTIONS (3)
  - Stress fracture [None]
  - Hip fracture [None]
  - Impaired healing [None]

NARRATIVE: CASE EVENT DATE: 20250126
